FAERS Safety Report 6516088-8 (Version None)
Quarter: 2009Q4

REPORT INFORMATION
  Report Type: 
  Country: None (occurrence: None)
  Receive Date: 20091216
  Receipt Date: 20091109
  Transmission Date: 20100525
  Serious: Yes (Other)
  Sender: FDA-Public Use
  Company Number: DSA_34087_2009

PATIENT
  Sex: Female

DRUGS (6)
  1. XENAZINE [Suspect]
     Indication: NERVOUS SYSTEM DISORDER
     Dosage: 50 MG QID ORAL, 37.5 MG QID ORAL
     Route: 048
     Dates: start: 20081201
  2. CLOZARIL [Concomitant]
  3. BUSPAR [Concomitant]
  4. TOPAMAX [Concomitant]
  5. TRAZODONE [Concomitant]
  6. EFFEXOR [Concomitant]

REACTIONS (3)
  - AMENORRHOEA [None]
  - BLOOD PROLACTIN INCREASED [None]
  - OVERDOSE [None]
